FAERS Safety Report 14020797 (Version 5)
Quarter: 2018Q1

REPORT INFORMATION
  Report Type: Spontaneous
  Country: US (occurrence: US)
  Receive Date: 20170928
  Receipt Date: 20180323
  Transmission Date: 20180508
  Serious: Yes (Disabling, Other)
  Sender: FDA-Public Use
  Company Number: US-REGENERON PHARMACEUTICALS, INC.-2017-22714

PATIENT

DRUGS (3)
  1. EYLEA [Suspect]
     Active Substance: AFLIBERCEPT
     Indication: NEOVASCULAR AGE-RELATED MACULAR DEGENERATION
     Dosage: 2 MG, OS, Q5WEEKS
     Route: 031
     Dates: start: 201301, end: 20170919
  2. EYLEA [Suspect]
     Active Substance: AFLIBERCEPT
     Dosage: 2 MG, LAST PRIOR TO EVENT, OS
     Route: 031
     Dates: start: 20170919, end: 20170919
  3. EYLEA [Suspect]
     Active Substance: AFLIBERCEPT
     Dosage: 2 MG, OS
     Route: 031
     Dates: start: 20170801, end: 20170801

REACTIONS (3)
  - Endophthalmitis [Recovered/Resolved]
  - Blindness unilateral [Unknown]
  - Dry age-related macular degeneration [Unknown]

NARRATIVE: CASE EVENT DATE: 20170920
